FAERS Safety Report 24910084 (Version 2)
Quarter: 2025Q3

REPORT INFORMATION
  Report Type: Spontaneous
  Country: US (occurrence: US)
  Receive Date: 20250131
  Receipt Date: 20250701
  Transmission Date: 20251020
  Serious: No
  Sender: EISAI
  Company Number: US-Eisai-EC-2025-182068

PATIENT
  Age: 82 Year
  Sex: Male
  Weight: 68.9 kg

DRUGS (3)
  1. LEQEMBI [Suspect]
     Active Substance: LECANEMAB-IRMB
     Indication: Dementia Alzheimer^s type
     Dates: start: 20240926, end: 20241205
  2. BENADRYL [Concomitant]
     Active Substance: DIPHENHYDRAMINE HYDROCHLORIDE
  3. TYLENOL [Concomitant]
     Active Substance: ACETAMINOPHEN

REACTIONS (4)
  - Pyrexia [Unknown]
  - Chills [Unknown]
  - Headache [Unknown]
  - Amyloid related imaging abnormality-microhaemorrhages and haemosiderin deposits [Recovering/Resolving]

NARRATIVE: CASE EVENT DATE: 20240101
